FAERS Safety Report 19169093 (Version 2)
Quarter: 2023Q1

REPORT INFORMATION
  Report Type: Report from Study
  Country: DE (occurrence: DE)
  Receive Date: 20210422
  Receipt Date: 20230324
  Transmission Date: 20230417
  Serious: Yes (Hospitalization)
  Sender: FDA-Public Use
  Company Number: DE-TAKEDA-2021TUS024443

PATIENT
  Age: 10 Year
  Sex: Female

DRUGS (3)
  1. HUMAN IMMUNOGLOBULIN G\HYALURONIDASE RECOMBINANT HUMAN [Suspect]
     Active Substance: HUMAN IMMUNOGLOBULIN G\HYALURONIDASE RECOMBINANT HUMAN
     Indication: Immunodeficiency
     Dosage: 10 GRAM
     Route: 058
     Dates: start: 20181205
  2. HUMAN IMMUNOGLOBULIN G\HYALURONIDASE RECOMBINANT HUMAN [Suspect]
     Active Substance: HUMAN IMMUNOGLOBULIN G\HYALURONIDASE RECOMBINANT HUMAN
     Dosage: 10 GRAM, Q6WEEKS
     Route: 058
     Dates: start: 20181205
  3. HUMAN IMMUNOGLOBULIN G\HYALURONIDASE RECOMBINANT HUMAN [Suspect]
     Active Substance: HUMAN IMMUNOGLOBULIN G\HYALURONIDASE RECOMBINANT HUMAN
     Dosage: UNK, Q8WEEKS
     Route: 065

REACTIONS (1)
  - Ligament rupture [Recovered/Resolved]

NARRATIVE: CASE EVENT DATE: 20210409
